FAERS Safety Report 16981155 (Version 2)
Quarter: 2020Q3

REPORT INFORMATION
  Report Type: Spontaneous
  Country: US (occurrence: US)
  Receive Date: 20191031
  Receipt Date: 20200730
  Transmission Date: 20201102
  Serious: Yes (Other)
  Sender: FDA-Public Use
  Company Number: US-JAZZ-JPI-P-019946

PATIENT
  Age: 42 Year
  Sex: Female
  Weight: 98.18 kg

DRUGS (17)
  1. SOMA [Concomitant]
     Active Substance: CARISOPRODOL
     Indication: PRODUCT USED FOR UNKNOWN INDICATION
     Dosage: UNK
  2. IMIPRAMINE [Concomitant]
     Active Substance: IMIPRAMINE
     Indication: PRODUCT USED FOR UNKNOWN INDICATION
     Dosage: UNK
  3. BUSPAR [Concomitant]
     Active Substance: BUSPIRONE HYDROCHLORIDE
     Indication: PRODUCT USED FOR UNKNOWN INDICATION
     Dosage: UNK
  4. PERPHENAZINE. [Concomitant]
     Active Substance: PERPHENAZINE
     Indication: ANGER
     Dosage: 4 MG, TID
     Route: 048
  5. DIAZEPAM. [Concomitant]
     Active Substance: DIAZEPAM
     Indication: ANXIETY
     Dosage: 10 MG, PRN
     Route: 048
  6. METHYLPHENIDATE HYDROCHLORIDE. [Concomitant]
     Active Substance: METHYLPHENIDATE HYDROCHLORIDE
     Indication: SOMNOLENCE
     Dosage: 20 MG, PRN
     Route: 048
  7. AMITRIPTYLINE HYDROCHLORIDE. [Concomitant]
     Active Substance: AMITRIPTYLINE HYDROCHLORIDE
     Indication: DEPRESSION
     Dosage: 150 MG, QD
     Route: 047
  8. HYDROCODONE BITARTRATE AND ACETAMINOPHEN [Concomitant]
     Active Substance: ACETAMINOPHEN\HYDROCODONE BITARTRATE
     Indication: BACK PAIN
     Dosage: UNK, PRN
     Route: 048
  9. LAMOTRIGINE. [Concomitant]
     Active Substance: LAMOTRIGINE
     Indication: AFFECTIVE DISORDER
     Dosage: 150 MG, BID
     Route: 048
  10. PANTOPRAZOLE [Concomitant]
     Active Substance: PANTOPRAZOLE
     Indication: GASTROOESOPHAGEAL REFLUX DISEASE
     Dosage: UNK UNK, QD
     Route: 048
  11. XYREM [Suspect]
     Active Substance: SODIUM OXYBATE
     Indication: NARCOLEPSY
     Dosage: UNKNOWN DOSE
     Route: 048
     Dates: start: 20101119
  12. CLONAZEPAM. [Suspect]
     Active Substance: CLONAZEPAM
     Indication: SOMNAMBULISM
     Dosage: UNK, QD
     Route: 048
  13. DETROL [Concomitant]
     Active Substance: TOLTERODINE TARTRATE
     Indication: PRODUCT USED FOR UNKNOWN INDICATION
     Dosage: UNK
  14. XYREM [Suspect]
     Active Substance: SODIUM OXYBATE
     Dosage: 2.5 G, TID
     Route: 048
  15. XYREM [Suspect]
     Active Substance: SODIUM OXYBATE
     Indication: CATAPLEXY
     Dosage: 3 G, QD
     Route: 048
  16. XYREM [Suspect]
     Active Substance: SODIUM OXYBATE
     Dosage: 3.5 G, BID
     Route: 048
     Dates: end: 20140224
  17. AMITRIPTYLINE HYDROCHLORIDE. [Concomitant]
     Active Substance: AMITRIPTYLINE HYDROCHLORIDE
     Indication: OBSESSIVE-COMPULSIVE DISORDER

REACTIONS (18)
  - Unevaluable event [Unknown]
  - Headache [Recovered/Resolved]
  - Somnolence [Not Recovered/Not Resolved]
  - Intentional product use issue [Unknown]
  - Withdrawal syndrome [Recovered/Resolved]
  - Therapeutic response unexpected [Unknown]
  - Hemiplegia [Not Recovered/Not Resolved]
  - Dental pulp disorder [Recovered/Resolved]
  - Tooth loss [Unknown]
  - Pre-existing condition improved [Unknown]
  - Spinal cord infection [Recovered/Resolved]
  - Intervertebral disc protrusion [Recovered/Resolved]
  - Muscle spasms [Recovered/Resolved]
  - Paranoia [Unknown]
  - Drug dependence [Recovered/Resolved]
  - Transient ischaemic attack [Not Recovered/Not Resolved]
  - Arthralgia [Recovered/Resolved]
  - Nausea [Unknown]

NARRATIVE: CASE EVENT DATE: 2012
